FAERS Safety Report 8694437 (Version 7)
Quarter: 2013Q2

REPORT INFORMATION
  Report Type: Report from Study
  Country: AU (occurrence: AU)
  Receive Date: 20120731
  Receipt Date: 20130510
  Transmission Date: 20140414
  Serious: Yes (Hospitalization)
  Sender: FDA-Public Use
  Company Number: AU-ROCHE-1093452

PATIENT
  Age: 72 Year
  Sex: Male
  Weight: 79 kg

DRUGS (13)
  1. VEMURAFENIB [Suspect]
     Indication: METASTATIC MALIGNANT MELANOMA
     Dosage: LAST DOSE PRIOR TO SAE: 15/JAN/2012
     Route: 048
     Dates: start: 20111230, end: 20120118
  2. SIFROL [Concomitant]
     Route: 065
     Dates: start: 2011
  3. ARTANE [Concomitant]
     Route: 065
     Dates: start: 2011, end: 20120120
  4. MINIPRESS [Concomitant]
     Route: 065
     Dates: start: 2000
  5. ISCOVER [Concomitant]
     Route: 065
     Dates: start: 2001
  6. SOMAC (AUSTRALIA) [Concomitant]
     Route: 065
     Dates: start: 2000
  7. ZOCOR [Concomitant]
     Route: 065
     Dates: start: 2001
  8. COVERSYL [Concomitant]
     Route: 065
     Dates: start: 2001
  9. ZOFRAN [Concomitant]
     Route: 065
     Dates: start: 201110
  10. PANADEINE (AUSTRALIA) [Concomitant]
     Dosage: 30/500 MG
     Route: 065
     Dates: start: 2011
  11. DEXAMETHASONE [Concomitant]
     Route: 065
     Dates: start: 201110, end: 20120123
  12. DEXAMETHASONE [Concomitant]
     Route: 065
     Dates: start: 20120123, end: 20120125
  13. NITROLINGUAL SPRAY [Concomitant]
     Route: 065
     Dates: start: 2001

REACTIONS (1)
  - Cognitive disorder [Recovered/Resolved]
